FAERS Safety Report 18038201 (Version 2)
Quarter: 2020Q3

REPORT INFORMATION
  Report Type: Report from Study
  Country: US (occurrence: US)
  Receive Date: 20200717
  Receipt Date: 20200819
  Transmission Date: 20201103
  Serious: No
  Sender: FDA-Public Use
  Company Number: US-SHIRE-US201850847

PATIENT
  Age: 59 Year
  Sex: Female

DRUGS (8)
  1. ALPRAZOLAM. [Concomitant]
     Active Substance: ALPRAZOLAM
     Indication: ANXIETY
  2. LOPERAMIDE [Concomitant]
     Active Substance: LOPERAMIDE
     Indication: DIARRHOEA
  3. TEDUGLUTIDE [Suspect]
     Active Substance: TEDUGLUTIDE
     Indication: SHORT-BOWEL SYNDROME
     Dosage: 3.27 MILLIGRAM (DAILY DOSE: 0.05 MILLIGRAM/ KILOGRAM), 1X/WEEK
     Route: 065
     Dates: start: 20150617
  4. PROAIR HFA [Concomitant]
     Active Substance: ALBUTEROL SULFATE
     Indication: WHEEZING
  5. TEDUGLUTIDE [Suspect]
     Active Substance: TEDUGLUTIDE
     Indication: SHORT-BOWEL SYNDROME
     Dosage: 3.27 MILLIGRAM (DAILY DOSE: 0.05 MILLIGRAM/ KILOGRAM), 1X/WEEK
     Route: 065
     Dates: start: 20150617
  6. TEDUGLUTIDE [Suspect]
     Active Substance: TEDUGLUTIDE
     Indication: SHORT-BOWEL SYNDROME
     Dosage: 3.27 MILLIGRAM (DAILY DOSE: 0.05 MILLIGRAM/ KILOGRAM), 1X/WEEK
     Route: 065
     Dates: start: 20150617
  7. OCTREOTIDE. [Concomitant]
     Active Substance: OCTREOTIDE
     Indication: SHORT-BOWEL SYNDROME
  8. TEDUGLUTIDE [Suspect]
     Active Substance: TEDUGLUTIDE
     Indication: SHORT-BOWEL SYNDROME
     Dosage: 3.27 MILLIGRAM (DAILY DOSE: 0.05 MILLIGRAM/ KILOGRAM), 1X/WEEK
     Route: 065
     Dates: start: 20150617

REACTIONS (1)
  - Malignant melanoma [Recovered/Resolved]

NARRATIVE: CASE EVENT DATE: 20180425
